FAERS Safety Report 12283790 (Version 1)
Quarter: 2016Q2

REPORT INFORMATION
  Report Type: Spontaneous
  Country: US (occurrence: US)
  Receive Date: 20160419
  Receipt Date: 20160419
  Transmission Date: 20160815
  Serious: No
  Sender: FDA-Public Use
  Company Number: US-BANPHARM-20153822

PATIENT
  Age: 48 Year
  Sex: Female
  Weight: 122.47 kg

DRUGS (5)
  1. PREVACID [Concomitant]
     Active Substance: LANSOPRAZOLE
  2. METFORMIN [Concomitant]
     Active Substance: METFORMIN HYDROCHLORIDE
  3. AMLODIPINE [Concomitant]
     Active Substance: AMLODIPINE BESYLATE
  4. SYNTHROID [Concomitant]
     Active Substance: LEVOTHYROXINE SODIUM
  5. ALEVE [Suspect]
     Active Substance: NAPROXEN SODIUM
     Indication: ARTHRITIS
     Dosage: 1 DF, Q12H,
     Route: 048
     Dates: start: 2010

REACTIONS (3)
  - Wrong technique in product usage process [Unknown]
  - Incorrect drug administration duration [Unknown]
  - Glossodynia [Recovered/Resolved]

NARRATIVE: CASE EVENT DATE: 2010
